FAERS Safety Report 20867760 (Version 1)
Quarter: 2022Q2

REPORT INFORMATION
  Report Type: Spontaneous
  Country: CH (occurrence: None)
  Receive Date: 20220523
  Receipt Date: 20220523
  Transmission Date: 20220721
  Serious: Yes (Other)
  Sender: FDA-Public Use
  Company Number: None

PATIENT
  Age: 53 Year
  Sex: Male

DRUGS (1)
  1. SIMPONI [Suspect]
     Active Substance: GOLIMUMAB
     Indication: Ankylosing spondylitis
     Dosage: FREQUENCY : MONTHLY;?OTHER ROUTE : GIVEN INTO/UNDER THE SKIN;?
     Route: 050

REACTIONS (2)
  - Injection site pain [None]
  - Injection site discolouration [None]

NARRATIVE: CASE EVENT DATE: 20220517
